FAERS Safety Report 4321242-X (Version None)
Quarter: 2004Q1

REPORT INFORMATION
  Report Type: 
  Country: None (occurrence: None)
  Receive Date: 20040322
  Receipt Date: 20040212
  Transmission Date: 20041129
  Serious: No
  Sender: FDA-Public Use
  Company Number: A-US2004-05140

PATIENT
  Age: 83 Year
  Sex: Male

DRUGS (6)
  1. TRACLEER [Suspect]
     Indication: PULMONARY HYPERTENSION
     Dosage: 62.5 MG, BID, ORAL
     Route: 048
     Dates: start: 20031109
  2. POTASSIUM (POTASSIUM) [Concomitant]
  3. COUMADNIE (WARFARIN SODIUM) [Concomitant]
  4. CELEBREX [Concomitant]
  5. ZOLOFT [Concomitant]
  6. DEMADEX [Concomitant]

REACTIONS (1)
  - BLOOD GLUCOSE INCREASED [None]
